FAERS Safety Report 13724906 (Version 4)
Quarter: 2020Q4

REPORT INFORMATION
  Report Type: Spontaneous
  Country: US (occurrence: US)
  Receive Date: 20170706
  Receipt Date: 20201229
  Transmission Date: 20210113
  Serious: No
  Sender: FDA-Public Use
  Company Number: US-PFIZER INC-2017285583

PATIENT
  Age: 66 Year
  Sex: Female
  Weight: 71.66 kg

DRUGS (1)
  1. FELDENE [Suspect]
     Active Substance: PIROXICAM
     Dosage: UNK

REACTIONS (3)
  - Photosensitivity reaction [Unknown]
  - Drug hypersensitivity [Unknown]
  - Rash [Unknown]
